FAERS Safety Report 5176915-6 (Version None)
Quarter: 2006Q4

REPORT INFORMATION
  Report Type: 
  Country: None (occurrence: None)
  Receive Date: 20061207
  Receipt Date: 20061127
  Transmission Date: 20070319
  Serious: Yes (Hospitalization)
  Sender: FDA-Public Use
  Company Number: 2006S1010971

PATIENT
  Age: 82 Year
  Sex: Male
  Weight: 90.7194 kg

DRUGS (5)
  1. FENTANYL TRANSDERMAL SYSTEM [Suspect]
     Indication: ARTHRALGIA
     Dosage: 75 UG/HR X1 TDER ; 25 UG/HG Q3D TDER
     Route: 062
     Dates: start: 20061122, end: 20061123
  2. FENTANYL TRANSDERMAL SYSTEM [Suspect]
     Indication: ARTHRALGIA
     Dosage: 75 UG/HR X1 TDER ; 25 UG/HG Q3D TDER
     Route: 062
     Dates: start: 20061123, end: 20061126
  3. FLUOXETINE HYDROCHLORIDE [Concomitant]
  4. PREGABALIN [Concomitant]
  5. ZOLPIDEM TARTRATE [Concomitant]

REACTIONS (2)
  - CONFUSIONAL STATE [None]
  - INCORRECT DOSE ADMINISTERED [None]
